FAERS Safety Report 7747436 (Version 17)
Quarter: 2012Q4

REPORT INFORMATION
  Report Type: 
  Country: US (occurrence: US)
  Receive Date: 20110104
  Receipt Date: 20121105
  Transmission Date: 20130627
  Serious: Yes (Other)
  Sender: FDA-Public Use
  Company Number: US-SANOFI-AVENTIS-2010SA078355

PATIENT
  Age: 65 Year
  Sex: Female
  Weight: 63.18 kg

DRUGS (30)
  1. MULTAQ [Suspect]
     Indication: ATRIAL FIBRILLATION
     Route: 048
     Dates: start: 20101125
  2. MULTAQ [Suspect]
     Indication: ATRIAL FLUTTER
     Route: 048
     Dates: start: 20101125
  3. MULTAQ [Suspect]
     Indication: ATRIAL FIBRILLATION
     Route: 048
     Dates: start: 20101125
  4. MULTAQ [Suspect]
     Indication: ATRIAL FLUTTER
     Route: 048
     Dates: start: 20101125
  5. MULTAQ [Suspect]
     Indication: ATRIAL FIBRILLATION
     Route: 048
     Dates: start: 20101125
  6. MULTAQ [Suspect]
     Indication: ATRIAL FLUTTER
     Route: 048
     Dates: start: 20101125
  7. MULTAQ [Suspect]
     Indication: ATRIAL FIBRILLATION
     Route: 048
     Dates: start: 20101125
  8. MULTAQ [Suspect]
     Indication: ATRIAL FLUTTER
     Route: 048
     Dates: start: 20101125
  9. MULTAQ [Suspect]
     Indication: ATRIAL FIBRILLATION
     Route: 048
     Dates: start: 20101125
  10. MULTAQ [Suspect]
     Indication: ATRIAL FLUTTER
     Route: 048
     Dates: start: 20101125
  11. MULTAQ [Suspect]
     Indication: ATRIAL FIBRILLATION
     Route: 048
     Dates: start: 20101125
  12. MULTAQ [Suspect]
     Indication: ATRIAL FLUTTER
     Route: 048
     Dates: start: 20101125
  13. MULTAQ [Suspect]
     Indication: ATRIAL FIBRILLATION
     Route: 048
     Dates: start: 20101125
  14. MULTAQ [Suspect]
     Indication: ATRIAL FLUTTER
     Route: 048
     Dates: start: 20101125
  15. MULTAQ [Suspect]
     Indication: ATRIAL FIBRILLATION
     Route: 048
     Dates: start: 20101125
  16. MULTAQ [Suspect]
     Indication: ATRIAL FLUTTER
     Route: 048
     Dates: start: 20101125
  17. MULTAQ [Suspect]
     Indication: ATRIAL FIBRILLATION
     Route: 048
     Dates: start: 20101125
  18. MULTAQ [Suspect]
     Indication: ATRIAL FLUTTER
     Route: 048
     Dates: start: 20101125
  19. ASPIRIN [Concomitant]
     Route: 048
  20. ASPIRIN [Concomitant]
     Dosage: 1/2 a tablet of 325 mg
     Route: 048
     Dates: start: 201101
  21. ACTONEL [Concomitant]
     Dosage: took for 2 to 3 yrs
     Route: 065
     Dates: end: 2011
  22. ALPRAZOLAM [Concomitant]
     Indication: ANXIETY
  23. ALPRAZOLAM [Concomitant]
     Indication: ANXIETY
  24. ALPRAZOLAM [Concomitant]
     Indication: ANXIETY
  25. ATORVASTATIN [Concomitant]
  26. ROSUVASTATIN CALCIUM [Concomitant]
     Dates: start: 2011
  27. XANAX [Concomitant]
     Indication: ANXIETY
  28. CALTRATE WITH VITAMIN D [Concomitant]
  29. CENTRUM [Concomitant]
  30. FISH OIL [Concomitant]

REACTIONS (23)
  - Angle closure glaucoma [Not Recovered/Not Resolved]
  - Eye pain [Not Recovered/Not Resolved]
  - Blepharospasm [Not Recovered/Not Resolved]
  - Visual impairment [Not Recovered/Not Resolved]
  - Pulmonary function test abnormal [Unknown]
  - Wheezing [Unknown]
  - Eye disorder [Unknown]
  - Atrial fibrillation [Unknown]
  - Heart rate irregular [Not Recovered/Not Resolved]
  - Depression [Unknown]
  - Circadian rhythm sleep disorder [Unknown]
  - Tension headache [Not Recovered/Not Resolved]
  - Blood glucose increased [Unknown]
  - Rash erythematous [Recovered/Resolved]
  - Skin exfoliation [Recovered/Resolved]
  - Product quality issue [Unknown]
  - Heart rate increased [Recovered/Resolved]
  - Nervousness [Unknown]
  - Nightmare [Unknown]
  - Tooth infection [Not Recovered/Not Resolved]
  - Generalised anxiety disorder [Not Recovered/Not Resolved]
  - Heart rate decreased [Unknown]
  - Constipation [Not Recovered/Not Resolved]
